FAERS Safety Report 9471655 (Version 1)
Quarter: 2013Q3

REPORT INFORMATION
  Report Type: Spontaneous
  Country: US (occurrence: None)
  Receive Date: 20130819
  Receipt Date: 20130819
  Transmission Date: 20140515
  Serious: Yes (Other)
  Sender: FDA-Public Use
  Company Number: 2013000201

PATIENT
  Age: 57 Year
  Sex: Female

DRUGS (4)
  1. ACEON [Suspect]
     Indication: HYPERTENSION
     Route: 048
     Dates: start: 2002, end: 201307
  2. CONCOR (BISOPROLOL FUMARATE) [Concomitant]
  3. WARFARIN [Concomitant]
  4. PANANGIN (MAGNESIUM ASPARTATE, POTASSIUM ASPARTATE) [Concomitant]

REACTIONS (4)
  - Dyspnoea [None]
  - Face oedema [None]
  - Eyelid oedema [None]
  - Pruritus [None]
